FAERS Safety Report 7606248-7 (Version None)
Quarter: 2011Q3

REPORT INFORMATION
  Report Type: 
  Country: None (occurrence: None)
  Receive Date: 20110713
  Receipt Date: 20110629
  Transmission Date: 20111222
  Serious: Yes (Hospitalization, Other)
  Sender: FDA-Public Use
  Company Number: US-BAYER-2011-025321

PATIENT
  Age: 23 Year
  Sex: Female
  Weight: 56.689 kg

DRUGS (7)
  1. ACIDOPHILUS [Concomitant]
     Indication: SUPPLEMENTATION THERAPY
     Dosage: UNK UNK, QD
     Route: 048
  2. OMEPRAZOLE [Concomitant]
     Indication: GALLBLADDER DISORDER
     Dosage: 20 MG, UNK
  3. DARVOCET [Concomitant]
     Indication: ANALGESIC THERAPY
     Dosage: AS NEEDED
  4. YASMIN [Suspect]
     Indication: ORAL CONTRACEPTION
     Route: 048
     Dates: start: 20090301, end: 20090901
  5. BENTYL [Concomitant]
     Indication: GASTROINTESTINAL PAIN
     Dosage: 20 MG, EVERY 6 HOURS
     Route: 048
  6. CLARITIN-D 24 HOUR [Concomitant]
     Indication: MULTIPLE ALLERGIES
     Dosage: AS NEEDED
     Route: 048
  7. ULTIMATE WOMEN+#8217;S VITAMINS [Concomitant]
     Indication: SUPPLEMENTATION THERAPY
     Dosage: UNK UNK, QD
     Route: 048

REACTIONS (4)
  - CHOLECYSTITIS CHRONIC [None]
  - ABDOMINAL PAIN [None]
  - GALLBLADDER DISORDER [None]
  - ANHEDONIA [None]
